FAERS Safety Report 8667624 (Version 3)
Quarter: 2013Q4

REPORT INFORMATION
  Report Type: Spontaneous
  Country: US (occurrence: US)
  Receive Date: 20120717
  Receipt Date: 20131101
  Transmission Date: 20140711
  Serious: No
  Sender: FDA-Public Use
  Company Number: US-009507513-1207USA002669

PATIENT
  Sex: Male

DRUGS (4)
  1. VICTRELIS [Suspect]
     Indication: HEPATITIS C
     Dosage: 800 MG, Q8H
     Route: 048
     Dates: start: 201203
  2. PEGINTRON [Suspect]
     Dosage: 150 MICROGRAM, QW
     Route: 058
  3. RIBASPHERE [Suspect]
     Dosage: 600 MG, BID
  4. PROZAC [Concomitant]

REACTIONS (2)
  - Anaemia [Unknown]
  - Fatigue [Unknown]
